FAERS Safety Report 9339614 (Version 1)
Quarter: 2013Q2

REPORT INFORMATION
  Report Type: Spontaneous
  Country: US (occurrence: US)
  Receive Date: 20130610
  Receipt Date: 20130610
  Transmission Date: 20140414
  Serious: No
  Sender: FDA-Public Use
  Company Number: US-BIOGENIDEC-2013BI048630

PATIENT
  Age: 11 Year
  Sex: Female

DRUGS (3)
  1. AVONEX [Suspect]
     Indication: MULTIPLE SCLEROSIS
     Route: 030
     Dates: start: 20130215
  2. TYLENOL [Concomitant]
     Indication: PREMEDICATION
  3. ALEVE [Concomitant]
     Indication: PREMEDICATION

REACTIONS (6)
  - Abdominal pain upper [Recovered/Resolved]
  - Influenza like illness [Recovered/Resolved]
  - Middle insomnia [Recovered/Resolved]
  - Chills [Recovered/Resolved]
  - Headache [Recovered/Resolved]
  - Pyrexia [Recovered/Resolved]
